FAERS Safety Report 11834138 (Version 1)
Quarter: 2015Q4

REPORT INFORMATION
  Report Type: Spontaneous
  Country: US (occurrence: US)
  Receive Date: 20151214
  Receipt Date: 20151214
  Transmission Date: 20160305
  Serious: Yes (Disabling, Other)
  Sender: FDA-Public Use
  Company Number: US-ROCHE-1671945

PATIENT
  Sex: Female
  Weight: 64.47 kg

DRUGS (3)
  1. ALLEGRA [Concomitant]
     Active Substance: FEXOFENADINE HYDROCHLORIDE
     Route: 048
     Dates: start: 20130829
  2. XOLAIR [Suspect]
     Active Substance: OMALIZUMAB
     Indication: CHRONIC SPONTANEOUS URTICARIA
     Route: 058
     Dates: start: 20140606, end: 20150721
  3. PEPCID [Concomitant]
     Active Substance: FAMOTIDINE
     Route: 048
     Dates: start: 20131122

REACTIONS (6)
  - Ear discomfort [Unknown]
  - Vertigo [Unknown]
  - White blood cell count decreased [Recovering/Resolving]
  - Nausea [Unknown]
  - Weight increased [Unknown]
  - Claustrophobia [Unknown]
